FAERS Safety Report 19907014 (Version 1)
Quarter: 2021Q4

REPORT INFORMATION
  Report Type: Spontaneous
  Country: US (occurrence: US)
  Receive Date: 20211001
  Receipt Date: 20211001
  Transmission Date: 20220303
  Serious: No
  Sender: FDA-Public Use
  Company Number: None

PATIENT
  Age: 72 Year
  Sex: Male
  Weight: 87 kg

DRUGS (2)
  1. NIVOLUMAB [Suspect]
     Active Substance: NIVOLUMAB
     Indication: Metastatic malignant melanoma
     Dosage: ?          OTHER FREQUENCY:OTHER
     Route: 042
     Dates: start: 20210427, end: 20210721
  2. IPILIMUMAB [Suspect]
     Active Substance: IPILIMUMAB
     Indication: Metastatic malignant melanoma
     Dosage: ?          OTHER FREQUENCY:OTHER
     Route: 042
     Dates: start: 20210424, end: 20210721

REACTIONS (10)
  - Rash [None]
  - Diarrhoea [None]
  - Septic shock [None]
  - Hypovolaemia [None]
  - Hypoalbuminaemia [None]
  - Hypotension [None]
  - Generalised oedema [None]
  - Capillary leak syndrome [None]
  - Dialysis [None]
  - Acute kidney injury [None]
